FAERS Safety Report 12651086 (Version 1)
Quarter: 2016Q3

REPORT INFORMATION
  Report Type: Spontaneous
  Country: US (occurrence: US)
  Receive Date: 20160815
  Receipt Date: 20160815
  Transmission Date: 20161109
  Serious: No
  Sender: FDA-Public Use
  Company Number: US-JAZZ-2016-US-005382

PATIENT
  Sex: Male

DRUGS (9)
  1. XYREM [Suspect]
     Active Substance: SODIUM OXYBATE
     Dosage: 3 G, BID
     Route: 048
     Dates: start: 201412
  2. XYREM [Suspect]
     Active Substance: SODIUM OXYBATE
     Indication: NARCOLEPSY
     Dosage: 2.25 G, BID
     Route: 048
     Dates: start: 201412, end: 201412
  3. DEXEDRINE [Concomitant]
     Active Substance: DEXTROAMPHETAMINE SULFATE
  4. LEVOFLOXACIN. [Concomitant]
     Active Substance: LEVOFLOXACIN
  5. BENTYL [Concomitant]
     Active Substance: DICYCLOMINE HYDROCHLORIDE
  6. HYDROCODONE [Concomitant]
     Active Substance: HYDROCODONE
  7. LYRICA [Concomitant]
     Active Substance: PREGABALIN
  8. MIRALAX [Concomitant]
     Active Substance: POLYETHYLENE GLYCOL 3350
  9. DEXTROAMPHETAMINE. [Concomitant]
     Active Substance: DEXTROAMPHETAMINE

REACTIONS (2)
  - Neuralgia [Unknown]
  - Glycosylated haemoglobin increased [Unknown]

NARRATIVE: CASE EVENT DATE: 2014
